FAERS Safety Report 18821948 (Version 16)
Quarter: 2022Q3

REPORT INFORMATION
  Report Type: Spontaneous
  Country: CA (occurrence: CA)
  Receive Date: 20210202
  Receipt Date: 20220915
  Transmission Date: 20221027
  Serious: Yes (Other)
  Sender: FDA-Public Use
  Company Number: CA-PFIZER INC-2020241561

PATIENT
  Age: 70 Year
  Sex: Female
  Weight: 85 kg

DRUGS (11)
  1. IBRANCE [Suspect]
     Active Substance: PALBOCICLIB
     Indication: Breast cancer metastatic
     Dosage: 75 MG, CYCLIC (EVERY 4 WEEKS 3 WEEKS, ONE WEEK OFF)
     Route: 048
     Dates: start: 20200311
  2. IBRANCE [Suspect]
     Active Substance: PALBOCICLIB
     Dosage: 125 MG, CYCLIC (21 DAYS ON/ 7 DAYS OFF)
     Route: 048
  3. IBRANCE [Suspect]
     Active Substance: PALBOCICLIB
     Dosage: 75 MG, DAILY (1 CAPSULE DAILY WITH FOOD FOR 21 DAYS THEN STOP FOR 7 DAYS)
     Route: 048
  4. IBRANCE [Suspect]
     Active Substance: PALBOCICLIB
     Dosage: 75 MG, 21 DAYS ON /7 DAYS OFF
     Route: 048
     Dates: start: 20210819
  5. IBRANCE [Suspect]
     Active Substance: PALBOCICLIB
     Dosage: 75 MG, DAILY ON DAY 1 TO 21
     Route: 048
     Dates: start: 20210916
  6. IBRANCE [Suspect]
     Active Substance: PALBOCICLIB
     Dosage: 75MG 21DAYS ON 7/DAYS OFF
     Route: 048
     Dates: start: 20211016
  7. IBRANCE [Suspect]
     Active Substance: PALBOCICLIB
     Dosage: 75MG
     Route: 048
     Dates: start: 20220910
  8. AMLODIPINE [Concomitant]
     Active Substance: AMLODIPINE BESYLATE
     Dosage: UNK
  9. FULVESTRANT [Concomitant]
     Active Substance: FULVESTRANT
     Indication: Breast cancer female
     Dosage: 500 MG, CYCLIC (EVERY 28 DAYS)
     Route: 030
  10. FULVESTRANT [Concomitant]
     Active Substance: FULVESTRANT
     Dosage: 500 MG, X1 ON DAY 1
     Route: 030
     Dates: start: 20210830
  11. PERINDOPRIL [Concomitant]
     Active Substance: PERINDOPRIL
     Dosage: UNK

REACTIONS (11)
  - Myelosuppression [Unknown]
  - Neutropenia [Unknown]
  - Leukopenia [Unknown]
  - Renal disorder [Unknown]
  - Body surface area decreased [Unknown]
  - White blood cell count decreased [Not Recovered/Not Resolved]
  - Haemoglobin increased [Not Recovered/Not Resolved]
  - Platelet count decreased [Not Recovered/Not Resolved]
  - White blood cell count increased [Unknown]
  - Haemoglobin decreased [Unknown]
  - Platelet count increased [Unknown]

NARRATIVE: CASE EVENT DATE: 20200101
